FAERS Safety Report 18893091 (Version 11)
Quarter: 2021Q3

REPORT INFORMATION
  Report Type: Report from Study
  Country: MY (occurrence: MY)
  Receive Date: 20210215
  Receipt Date: 20210819
  Transmission Date: 20211014
  Serious: Yes (Hospitalization)
  Sender: FDA-Public Use
  Company Number: NVSC2021MY027916

PATIENT
  Age: 58 Year
  Sex: Female
  Weight: 54 kg

DRUGS (17)
  1. MAXOLON [Concomitant]
     Active Substance: METOCLOPRAMIDE HYDROCHLORIDE
     Dosage: UNK
     Route: 065
     Dates: start: 20210122, end: 20210129
  2. AUGMENTIN [Concomitant]
     Active Substance: AMOXICILLIN\CLAVULANATE POTASSIUM
     Indication: RASH
     Dosage: 625 MG
     Route: 065
     Dates: start: 20210327, end: 20210329
  3. NEXIUM [Concomitant]
     Active Substance: ESOMEPRAZOLE MAGNESIUM
     Indication: PAIN
     Dosage: UNK
     Route: 065
     Dates: start: 20210122, end: 20210129
  4. FLAGYL [Concomitant]
     Active Substance: METRONIDAZOLE\METRONIDAZOLE HYDROCHLORIDE
     Indication: RASH
     Dosage: UNK
     Route: 065
     Dates: start: 20210326, end: 20210328
  5. ALPELISIB [Suspect]
     Active Substance: ALPELISIB
     Dosage: UNK
     Route: 048
     Dates: start: 20210122
  6. HYDROCORTISONE. [Concomitant]
     Active Substance: HYDROCORTISONE
     Indication: RASH
     Dosage: UNK
     Route: 065
     Dates: start: 20210129, end: 20210205
  7. SODIUM LACTATE. [Concomitant]
     Active Substance: SODIUM LACTATE
     Indication: FLUID REPLACEMENT
     Dosage: UNK
     Route: 065
     Dates: start: 20210122, end: 20210122
  8. METFORMIN [Concomitant]
     Active Substance: METFORMIN HYDROCHLORIDE
     Indication: HYPERGLYCAEMIA
     Dosage: 250 MG
     Route: 065
     Dates: start: 20210318
  9. MORPHINE [Concomitant]
     Active Substance: MORPHINE
     Indication: RASH
     Dosage: UNK
     Route: 065
     Dates: start: 20210326, end: 20210329
  10. MAXOLON [Concomitant]
     Active Substance: METOCLOPRAMIDE HYDROCHLORIDE
     Indication: PAIN
     Dosage: 10 MG
     Route: 065
     Dates: start: 20210115, end: 20210124
  11. ALPELISIB [Suspect]
     Active Substance: ALPELISIB
     Indication: BREAST CANCER
     Dosage: UNK
     Route: 048
     Dates: start: 20210115, end: 20210121
  12. COMPARATOR NAB?PACLITAXEL [Suspect]
     Active Substance: PACLITAXEL
     Indication: BREAST CANCER
     Dosage: 150 MG, ONCE
     Route: 042
     Dates: start: 20210115
  13. PARACETAMOL [Concomitant]
     Active Substance: ACETAMINOPHEN
     Indication: RASH
     Dosage: UNK
     Route: 065
     Dates: start: 20210122, end: 20210129
  14. PARACETAMOL [Concomitant]
     Active Substance: ACETAMINOPHEN
     Indication: PAIN
     Dosage: UNK
     Route: 065
     Dates: start: 20210328, end: 20210329
  15. MORPHINE [Concomitant]
     Active Substance: MORPHINE
     Indication: PAIN
     Dosage: UNK
     Route: 065
     Dates: start: 20210122, end: 20210129
  16. VASELINE PURE [Concomitant]
     Active Substance: PETROLATUM
     Indication: RASH
     Dosage: UNK
     Route: 065
     Dates: start: 20210326, end: 20210329
  17. PIRITON [Concomitant]
     Active Substance: CHLORPHENIRAMINE MALEATE
     Indication: PAIN
     Dosage: UNK
     Route: 065
     Dates: start: 20210122, end: 20210129

REACTIONS (2)
  - Stomatitis [Recovering/Resolving]
  - Febrile neutropenia [Recovered/Resolved]

NARRATIVE: CASE EVENT DATE: 20210205
